FAERS Safety Report 4513120-8 (Version None)
Quarter: 2004Q4

REPORT INFORMATION
  Report Type: 
  Country: None (occurrence: None)
  Receive Date: 20040928
  Receipt Date: 20040623
  Transmission Date: 20050328
  Serious: No
  Sender: FDA-Public Use
  Company Number: 04P-163-0264620-00

PATIENT
  Age: 47 Year
  Sex: Female
  Weight: 70.7611 kg

DRUGS (5)
  1. HUMIRA [Suspect]
     Indication: RHEUMATOID ARTHRITIS
     Dosage: 40 MG, 1 IN 2 WK, SUBCUTANEOUS
     Route: 058
     Dates: start: 20040427
  2. METHYLPREDNISOLONE [Concomitant]
  3. RISEDRONATE SODIUM [Concomitant]
  4. FUROSEMIDE [Concomitant]
  5. CONJUGATED ESTROGEN [Concomitant]

REACTIONS (4)
  - INJECTION SITE HAEMORRHAGE [None]
  - INJECTION SITE PAIN [None]
  - INJECTION SITE SWELLING [None]
  - OPEN WOUND [None]
